FAERS Safety Report 20506189 (Version 3)
Quarter: 2022Q2

REPORT INFORMATION
  Report Type: Report from Study
  Country: KR (occurrence: KR)
  Receive Date: 20220223
  Receipt Date: 20220412
  Transmission Date: 20220721
  Serious: Yes (Hospitalization)
  Sender: FDA-Public Use
  Company Number: KR-KOREA IPSEN Pharma-2022-04267

PATIENT
  Age: 73 Year
  Sex: Male

DRUGS (45)
  1. CABOZANTINIB [Suspect]
     Active Substance: CABOZANTINIB
     Indication: Metastatic renal cell carcinoma
     Dosage: 60 MG, QD
     Route: 048
     Dates: start: 20200814, end: 20200827
  2. CABOZANTINIB [Suspect]
     Active Substance: CABOZANTINIB
     Dosage: 60 MG, QD
     Route: 048
     Dates: start: 20200904, end: 20200917
  3. CABOZANTINIB [Suspect]
     Active Substance: CABOZANTINIB
     Dosage: 40 MG, QD
     Route: 048
     Dates: start: 20201002, end: 20201020
  4. CABOZANTINIB [Suspect]
     Active Substance: CABOZANTINIB
     Dosage: 40 MG, QD
     Route: 048
     Dates: start: 20201106, end: 20201209
  5. CABOZANTINIB [Suspect]
     Active Substance: CABOZANTINIB
     Dosage: 40 MG, QOD
     Route: 048
     Dates: start: 20201217, end: 20210105
  6. CABOZANTINIB [Suspect]
     Active Substance: CABOZANTINIB
     Dosage: 20 MG, QD
     Route: 048
     Dates: start: 20210106, end: 20210817
  7. CABOZANTINIB [Suspect]
     Active Substance: CABOZANTINIB
     Dosage: 20 MG, QD
     Route: 048
     Dates: start: 20210825, end: 20211109
  8. CABOZANTINIB [Suspect]
     Active Substance: CABOZANTINIB
     Dosage: 20 MG, QD
     Route: 048
     Dates: start: 20211119, end: 20211221
  9. CABOZANTINIB [Suspect]
     Active Substance: CABOZANTINIB
     Dosage: 40 MG, QD
     Route: 048
     Dates: start: 20211222
  10. CODEINE PHOSPHATE [Concomitant]
     Active Substance: CODEINE PHOSPHATE
     Indication: Cancer pain
     Dosage: 20 MG, TWICE PER MONTH (ONGOING)
     Route: 048
     Dates: start: 20191203
  11. K-Cab [Concomitant]
     Indication: Gastrooesophageal reflux disease
     Dosage: 50 MG, PER DAY (ONGOING)
     Route: 048
     Dates: start: 20211020
  12. METFORMIN HYDROCHLORIDE\VILDAGLIPTIN [Concomitant]
     Active Substance: METFORMIN HYDROCHLORIDE\VILDAGLIPTIN
     Indication: Diabetes mellitus
     Dosage: 1 TABLET TWICE PER DAY
     Route: 048
     Dates: start: 20150715, end: 20201111
  13. Dilatrend sr [Concomitant]
     Indication: Hypertension
     Dosage: 8 MG, QD
     Route: 048
     Dates: start: 20200721, end: 20210710
  14. RABEPRAZOLE SODIUM [Concomitant]
     Active Substance: RABEPRAZOLE SODIUM
     Indication: Hyperchlorhydria
     Dosage: 10 MG, PER DAY
     Route: 048
     Dates: start: 20200721, end: 20210720
  15. MOLSITON [Concomitant]
     Indication: Acute myocardial infarction
     Dosage: 4 MG, BID
     Route: 048
     Dates: start: 20210428, end: 20210726
  16. ESOMEZOLE [Concomitant]
     Indication: Prophylaxis
     Dosage: 20 MG, PER DAY
     Route: 048
     Dates: start: 20210810, end: 20210823
  17. EXONIN [Concomitant]
     Indication: Pain prophylaxis
     Dosage: 75 MG, BID
     Route: 048
     Dates: start: 20210721, end: 20210823
  18. KLARICID XL [Concomitant]
     Indication: Helicobacter gastritis
     Dosage: 500 MG, BID
     Route: 048
     Dates: start: 20210810, end: 20210823
  19. Kymoxin [Concomitant]
     Indication: Helicobacter gastritis
     Dosage: 1000 MG, BID
     Route: 048
     Dates: start: 20210810, end: 20210823
  20. ARTICAINE\EPINEPHRINE [Concomitant]
     Active Substance: ARTICAINE\EPINEPHRINE
     Indication: Prophylaxis
     Dosage: 2 AMP 1:00,000 ONCE
     Route: 058
     Dates: start: 20210122, end: 20210122
  21. TRANSAMIN [Concomitant]
     Active Substance: TRANEXAMIC ACID
     Indication: Haemorrhage
     Dosage: 500 MG, TID
     Route: 048
     Dates: start: 20200731, end: 20200912
  22. CLOPIDOGREL BISULFATE [Concomitant]
     Active Substance: CLOPIDOGREL BISULFATE
     Indication: Coagulopathy
     Dosage: 75 MG, PER DAY (ONGOING)
     Route: 048
     Dates: start: 20200721
  23. CLOPIDOGREL BISULFATE [Concomitant]
     Active Substance: CLOPIDOGREL BISULFATE
     Indication: Acute myocardial infarction
  24. OLOSTAR [Concomitant]
     Indication: Cardiovascular disorder
     Dosage: 1 TABLET, PER DAY (ONGOING)
     Route: 048
     Dates: start: 20200721
  25. OLOSTAR [Concomitant]
     Indication: Acute myocardial infarction
  26. VASTINAN MR [Concomitant]
     Indication: Acute myocardial infarction
     Dosage: 35 MG TWICE PER DAY, (ONGOING)
     Route: 048
     Dates: start: 20200721
  27. NICORANDIL [Concomitant]
     Active Substance: NICORANDIL
     Indication: Acute myocardial infarction
     Dosage: 5 MG, TWICE PER DAY (ONGOING)
     Route: 048
     Dates: start: 20200721
  28. GINEXIN-F [Concomitant]
     Indication: Hypertension
     Dosage: 40 MG, TWICE PER DAY (ONGOING)
     Route: 048
     Dates: start: 20200721
  29. TOUJEO [Concomitant]
     Active Substance: INSULIN GLARGINE
     Indication: Diabetes mellitus
     Dosage: 450 IU PER DAY (ONGOING)
     Route: 058
     Dates: start: 20200715
  30. XIGDUO XR [Concomitant]
     Active Substance: DAPAGLIFLOZIN PROPANEDIOL\METFORMIN HYDROCHLORIDE
     Indication: Diabetes mellitus
     Dosage: 1 TABLET PER DAY (ONGOING)
     Route: 048
     Dates: start: 20201104
  31. DIABEX [Concomitant]
     Active Substance: METFORMIN HYDROCHLORIDE
     Indication: Diabetes mellitus
     Dosage: 1000 MG PER DAY (ONGOING)
     Route: 048
     Dates: start: 20201104
  32. CELEBREX [Concomitant]
     Active Substance: CELECOXIB
     Indication: Osteolysis
     Dosage: 100 MG, TWICE PER DAY (ONGOING)
     Route: 048
     Dates: start: 20210721
  33. BISOPROLOL FUMARATE [Concomitant]
     Active Substance: BISOPROLOL FUMARATE
     Indication: Cardiovascular disorder
     Dosage: 2.5 MG PER DAY (ONGOING)
     Route: 048
     Dates: start: 20210705
  34. BISOPROLOL FUMARATE [Concomitant]
     Active Substance: BISOPROLOL FUMARATE
     Indication: Acute myocardial infarction
  35. LYRICA [Concomitant]
     Active Substance: PREGABALIN
     Indication: Pain prophylaxis
     Dosage: 75 MG, TWICE PER DAY (ONGOING)
     Route: 048
     Dates: start: 20210721
  36. LYRICA [Concomitant]
     Active Substance: PREGABALIN
     Indication: Intervertebral disc disorder
  37. ULTRACET [Concomitant]
     Active Substance: ACETAMINOPHEN\TRAMADOL HYDROCHLORIDE
     Indication: Pain prophylaxis
     Dosage: 1 TABLET TWICE PER DAY
     Route: 048
     Dates: start: 20211110
  38. ISMO [Concomitant]
     Active Substance: ISOSORBIDE MONONITRATE
     Indication: Cardiovascular disorder
     Dosage: 20MG, TWICE PER DAY (ONGOING)
     Route: 048
     Dates: start: 20210705
  39. ISMO [Concomitant]
     Active Substance: ISOSORBIDE MONONITRATE
     Indication: Acute myocardial infarction
  40. ISOSORBIDE DINITRATE [Concomitant]
     Active Substance: ISOSORBIDE DINITRATE
     Indication: Acute myocardial infarction
     Dosage: 1.25MG, ORAL, ONGOING
     Route: 048
     Dates: start: 20210428
  41. Phazyme-95 [Concomitant]
     Indication: Gastrooesophageal reflux disease
     Dosage: 95 MG, TWICE PER DAY
     Route: 048
     Dates: start: 20210810, end: 20210823
  42. Phazyme-95 [Concomitant]
     Dosage: 95 MG (THREE TIMES PER DAY) (ONGOING)
     Route: 048
     Dates: start: 20211020
  43. Stilen 2X [Concomitant]
     Indication: Gastrooesophageal reflux disease
     Dosage: 90MG, TWICE PER DAY, ONGOING
     Route: 048
     Dates: start: 20211020
  44. COSOPT [Concomitant]
     Active Substance: DORZOLAMIDE HYDROCHLORIDE\TIMOLOL MALEATE
     Indication: Glaucoma
     Dosage: 1 DROP, TWICE PER DAY (ONGOING)
     Route: 031
     Dates: start: 20210210
  45. PARACAINE [Concomitant]
     Active Substance: PROPARACAINE HYDROCHLORIDE
     Indication: Glaucoma
     Dosage: 1 DROP, PER DAY (ONGOING)
     Route: 031
     Dates: start: 20210210

REACTIONS (1)
  - Hip fracture [Recovered/Resolved]

NARRATIVE: CASE EVENT DATE: 20220121
